FAERS Safety Report 4617160-X (Version None)
Quarter: 2005Q1

REPORT INFORMATION
  Report Type: 
  Country: None (occurrence: None)
  Receive Date: 20050323
  Receipt Date: 20050322
  Transmission Date: 20050727
  Serious: Yes (Death, Hospitalization)
  Sender: FDA-Public Use
  Company Number: 121

PATIENT
  Age: 65 Year
  Sex: Female

DRUGS (1)
  1. MELPHALAN [Suspect]
     Indication: MULTIPLE MYELOMA
     Dosage: 320MG SINGLE DOSE
     Route: 042
     Dates: start: 20041111, end: 20041111

REACTIONS (5)
  - DIZZINESS [None]
  - FALL [None]
  - HAEMORRHAGE INTRACRANIAL [None]
  - HEADACHE [None]
  - NAUSEA [None]
